FAERS Safety Report 17530494 (Version 1)
Quarter: 2020Q1

REPORT INFORMATION
  Report Type: Spontaneous
  Country: GB (occurrence: GB)
  Receive Date: 20200312
  Receipt Date: 20200312
  Transmission Date: 20200409
  Serious: Yes (Hospitalization)
  Sender: FDA-Public Use
  Company Number: GB-TEVA-2020-GB-1197174

PATIENT
  Age: 58 Year
  Sex: Male
  Weight: 125 kg

DRUGS (2)
  1. FLUCONAZOLE. [Suspect]
     Active Substance: FLUCONAZOLE
     Indication: ORAL CANDIDIASIS
     Dosage: 50 MILLIGRAM
     Route: 048
     Dates: start: 20200129, end: 20200211
  2. INFLECTRA [Suspect]
     Active Substance: INFLIXIMAB-DYYB
     Indication: COLITIS
     Dosage: UNIT DOSE : 10 MG/KG, 625MG AT DAY 1 AND DAY 7 (ACCELERATED REGIME) - DOSE CALCULATED ON ABW OF 125K
     Route: 042
     Dates: start: 20200130, end: 20200206

REACTIONS (2)
  - Alanine aminotransferase increased [Recovering/Resolving]
  - Liver function test abnormal [Recovering/Resolving]

NARRATIVE: CASE EVENT DATE: 20200204
